FAERS Safety Report 7456447-2 (Version None)
Quarter: 2011Q2

REPORT INFORMATION
  Report Type: 
  Country: None (occurrence: None)
  Receive Date: 20110503
  Receipt Date: 20110427
  Transmission Date: 20111010
  Serious: Yes (Other)
  Sender: FDA-Public Use
  Company Number: BR-PFIZER INC-2010021208

PATIENT
  Age: 72 Year
  Sex: Male
  Weight: 80 kg

DRUGS (5)
  1. ZOLADEX [Suspect]
     Indication: PROSTATE CANCER
  2. BROMAZEPAM [Concomitant]
     Indication: FEELING OF RELAXATION
     Dosage: 3 MG, AS NEEDED
  3. XALATAN [Suspect]
     Indication: GLAUCOMA
     Dosage: 3 UG OF LATANOPROST / 300UG OF TIMOLOL MALEATE
     Route: 047
  4. CAPTOPRIL [Suspect]
     Indication: HYPERTENSION
     Dosage: UNK
     Dates: start: 20100401
  5. XALATAN [Suspect]
     Indication: GLAUCOMA
     Dosage: 3 UG, 1X/DAY
     Route: 047
     Dates: start: 20100210

REACTIONS (12)
  - INFLUENZA [None]
  - COUGH [None]
  - PROSTATE CANCER [None]
  - SINUSITIS [None]
  - DRUG NAME CONFUSION [None]
  - WRONG DRUG ADMINISTERED [None]
  - OCULAR DISCOMFORT [None]
  - PYREXIA [None]
  - HYPERHIDROSIS [None]
  - DRUG DISPENSING ERROR [None]
  - ULCER [None]
  - HOT FLUSH [None]
